FAERS Safety Report 10101244 (Version 1)
Quarter: 2014Q2

REPORT INFORMATION
  Report Type: Spontaneous
  Country: CA (occurrence: None)
  Receive Date: 20140422
  Receipt Date: 20140422
  Transmission Date: 20141212
  Serious: Yes (Hospitalization)
  Sender: FDA-Public Use
  Company Number: CA014011404

PATIENT
  Age: 77 Year
  Sex: Female

DRUGS (1)
  1. METAMUCIL SUGAR-FREE SMOOTH TEXTURE, ORANGE FLAVOR (PSYLLIUM HYDROPHILIC MUCILLOID 3.4 G) POWDER FOR ORAL SOLUTION, 5.8G [Suspect]
     Indication: CONSTIPATION
     Dosage: 1 TSP, 1 ONLY, ORAL
     Route: 048
     Dates: start: 20140415, end: 20140415

REACTIONS (6)
  - Angina pectoris [None]
  - Musculoskeletal pain [None]
  - Abdominal pain [None]
  - Abdominal discomfort [None]
  - Nausea [None]
  - Vomiting [None]
